FAERS Safety Report 6552939-9 (Version None)
Quarter: 2010Q1

REPORT INFORMATION
  Report Type: 
  Country: None (occurrence: None)
  Receive Date: 20100122
  Receipt Date: 20100107
  Transmission Date: 20100710
  Serious: Yes (Hospitalization)
  Sender: FDA-Public Use
  Company Number: DSJ-2010-00232

PATIENT
  Age: 64 Year
  Sex: Female

DRUGS (6)
  1. BENICAR HCT [Suspect]
     Indication: HYPERTENSION
     Dosage: 20/ 12.5MG (1 IN 1 D), PER ORAL
     Route: 048
     Dates: start: 20060101, end: 20091214
  2. ATORVASTATIN (ATORVASTATIN) (ATORVASTATIN) [Concomitant]
  3. LEBOTHYROXINE SODIUM (LEVOTHYROXINE SODIUM) (LEVOTHYROXINE SODIUM) [Concomitant]
  4. TICLOPIDINE HYDROCHLORIDE (TICLOPIDINE HYDROCHLORIDE) (TICLOPIDINE HYD [Concomitant]
  5. ATENOLOL [Concomitant]
  6. MONONITRATE ISOSORBIDE (ISOSORBIDE MONONITRATE) (ISOSORBIDE MONONITRAT [Concomitant]

REACTIONS (2)
  - DRUG INEFFECTIVE [None]
  - TACHYCARDIA [None]
